FAERS Safety Report 23618747 (Version 4)
Quarter: 2024Q4

REPORT INFORMATION
  Report Type: Spontaneous
  Country: US (occurrence: US)
  Receive Date: 20240311
  Receipt Date: 20241004
  Transmission Date: 20250115
  Serious: No
  Sender: BRISTOL MYERS SQUIBB
  Company Number: US-BRISTOL-MYERS SQUIBB COMPANY-2024-038434

PATIENT
  Age: 72 Year
  Sex: Female
  Weight: 58.97 kg

DRUGS (3)
  1. REVLIMID [Suspect]
     Active Substance: LENALIDOMIDE
     Indication: Chronic kidney disease
     Route: 048
     Dates: start: 20240201
  2. REVLIMID [Suspect]
     Active Substance: LENALIDOMIDE
     Indication: Follicular lymphoma
     Route: 048
     Dates: start: 20240606
  3. CEPHALEXIN MONOHYDRATE [Concomitant]
     Active Substance: CEPHALEXIN MONOHYDRATE
     Indication: Product used for unknown indication

REACTIONS (9)
  - Eye pruritus [Unknown]
  - Insomnia [Unknown]
  - Constipation [Unknown]
  - Pruritus [Unknown]
  - Weight decreased [Unknown]
  - Skin discolouration [Unknown]
  - Off label use [Unknown]
  - Diarrhoea [Unknown]
  - Lacrimation increased [Unknown]
